FAERS Safety Report 6339802-3 (Version None)
Quarter: 2009Q3

REPORT INFORMATION
  Report Type: 
  Country: None (occurrence: None)
  Receive Date: 20090903
  Receipt Date: 20090828
  Transmission Date: 20100115
  Serious: Yes (Hospitalization, Other)
  Sender: FDA-Public Use
  Company Number: PHHY2009JP28986

PATIENT
  Age: 79 Year
  Sex: Female

DRUGS (2)
  1. VOLTAREN [Suspect]
     Indication: PAIN
     Dosage: 50MG PER DAY
     Route: 054
     Dates: start: 20090627, end: 20090705
  2. GRACEVIT [Suspect]
     Dosage: UNK
     Route: 048
     Dates: start: 20090627, end: 20090702

REACTIONS (5)
  - ASPARTATE AMINOTRANSFERASE INCREASED [None]
  - BLOOD ALKALINE PHOSPHATASE INCREASED [None]
  - C-REACTIVE PROTEIN INCREASED [None]
  - GAMMA-GLUTAMYLTRANSFERASE INCREASED [None]
  - LIVER DISORDER [None]
